FAERS Safety Report 25435134 (Version 1)
Quarter: 2025Q2

REPORT INFORMATION
  Report Type: Spontaneous
  Country: KR (occurrence: KR)
  Receive Date: 20250613
  Receipt Date: 20250613
  Transmission Date: 20250717
  Serious: Yes (Death, Hospitalization, Other)
  Sender: AMGEN
  Company Number: KR-AMGEN-KORSP2025113675

PATIENT

DRUGS (1)
  1. EVOLOCUMAB [Suspect]
     Active Substance: EVOLOCUMAB
     Indication: Acute coronary syndrome
     Route: 065

REACTIONS (7)
  - Cardiac death [Fatal]
  - Cardiac failure [Unknown]
  - Cerebrovascular accident [Unknown]
  - Vascular stent thrombosis [Unknown]
  - Infarction [Unknown]
  - Cardiovascular disorder [Unknown]
  - Revascularisation procedure [Unknown]
